FAERS Safety Report 9765092 (Version 3)
Quarter: 2014Q1

REPORT INFORMATION
  Report Type: Spontaneous
  Country: US (occurrence: US)
  Receive Date: 20131217
  Receipt Date: 20140131
  Transmission Date: 20141002
  Serious: No
  Sender: FDA-Public Use
  Company Number: US-PFIZER INC-2013359147

PATIENT
  Age: 49 Year
  Sex: Female

DRUGS (1)
  1. LYRICA [Suspect]
     Dosage: 200 MG, 3X/DAY
     Route: 048

REACTIONS (4)
  - Malaise [Unknown]
  - Vomiting [Unknown]
  - Asthenia [Unknown]
  - Feeling abnormal [Unknown]
